FAERS Safety Report 21481957 (Version 2)
Quarter: 2022Q4

REPORT INFORMATION
  Report Type: Report from Study
  Country: US (occurrence: US)
  Receive Date: 20221020
  Receipt Date: 20221031
  Transmission Date: 20230112
  Serious: Yes (Other)
  Sender: FDA-Public Use
  Company Number: US-ABBVIE-4167361

PATIENT
  Sex: Male

DRUGS (1)
  1. PANCRELIPASE [Suspect]
     Active Substance: PANCRELIPASE
     Indication: Product used for unknown indication
     Route: 048

REACTIONS (1)
  - Pancreatic carcinoma [Unknown]
